FAERS Safety Report 8872108 (Version 1)
Quarter: 2012Q4

REPORT INFORMATION
  Report Type: 
  Country: US (occurrence: US)
  Receive Date: 20121023
  Receipt Date: 20121023
  Transmission Date: 20130627
  Serious: Yes (Other)
  Sender: FDA-Public Use
  Company Number: US-ASTELLAS-2012US004429

PATIENT
  Sex: Female
  Weight: 82 kg

DRUGS (3)
  1. PROGRAF [Suspect]
     Indication: RENAL TRANSPLANT
     Dosage: 4 mg, bid
     Route: 048
     Dates: start: 1997
  2. INSULIN [Concomitant]
     Indication: DIABETES MELLITUS
     Dosage: UNK
     Route: 065
  3. METOPROLOL [Concomitant]
     Indication: BLOOD PRESSURE
     Dosage: 50 UNK, bid
     Route: 065

REACTIONS (5)
  - Myocardial infarction [Unknown]
  - Renal failure [Unknown]
  - Blindness [Unknown]
  - Malaise [Unknown]
  - Gallbladder operation [Unknown]
